FAERS Safety Report 13017514 (Version 1)
Quarter: 2016Q4

REPORT INFORMATION
  Report Type: Spontaneous
  Country: US (occurrence: US)
  Receive Date: 20161209
  Receipt Date: 20161209
  Transmission Date: 20170207
  Serious: Yes (Hospitalization)
  Sender: FDA-Public Use
  Company Number: None

PATIENT
  Age: 72 Year
  Sex: Female

DRUGS (11)
  1. ROZEREM [Concomitant]
     Active Substance: RAMELTEON
  2. MYCOPHENOLATE 500MG TAB TEVA [Suspect]
     Active Substance: MYCOPHENOLATE MOFETIL
     Indication: HEART TRANSPLANT
     Dosage: MYCOPHENOLATE 500MG TAB - 3 TABS (1,500MG) - PO - BID
     Route: 048
     Dates: start: 20160907
  3. XARELTO [Concomitant]
     Active Substance: RIVAROXABAN
  4. PANTOPRAZOLE [Concomitant]
     Active Substance: PANTOPRAZOLE SODIUM
  5. SMZ-TMP [Concomitant]
     Active Substance: SULFAMETHOXAZOLE\TRIMETHOPRIM
  6. METHYLPRED [Concomitant]
     Active Substance: METHYLPREDNISOLONE
  7. PRAVASTATIN. [Concomitant]
     Active Substance: PRAVASTATIN
  8. HYDROXYZ HCL [Concomitant]
     Active Substance: HYDROXYZINE HYDROCHLORIDE
  9. LEVOTHYROXIN [Concomitant]
     Active Substance: LEVOTHYROXINE
  10. PROGRAF [Concomitant]
     Active Substance: TACROLIMUS\TACROLIMUS ANHYDROUS
  11. URSODIOL. [Concomitant]
     Active Substance: URSODIOL

REACTIONS (1)
  - Cerebrovascular accident [None]

NARRATIVE: CASE EVENT DATE: 201612
